FAERS Safety Report 11423177 (Version 2)
Quarter: 2015Q3

REPORT INFORMATION
  Report Type: Spontaneous
  Country: US (occurrence: US)
  Receive Date: 20150827
  Receipt Date: 20150925
  Transmission Date: 20151125
  Serious: No
  Sender: FDA-Public Use
  Company Number: US-AMGEN-USASP2015086123

PATIENT
  Age: 56 Year
  Sex: Female

DRUGS (1)
  1. ENBREL [Suspect]
     Active Substance: ETANERCEPT
     Indication: PSORIASIS
     Dosage: 50 MG, QWK (ONE TIME WEEKLY)
     Route: 065
     Dates: start: 20150709

REACTIONS (7)
  - Rash generalised [Unknown]
  - Injection site erythema [Unknown]
  - Hepatic enzyme increased [Unknown]
  - Skin disorder [Unknown]
  - Activities of daily living impaired [Unknown]
  - Pruritus generalised [Unknown]
  - Injection site rash [Unknown]

NARRATIVE: CASE EVENT DATE: 2015
